FAERS Safety Report 8334424 (Version 2)
Quarter: 2014Q4

REPORT INFORMATION
  Report Type: Spontaneous
  Country: US (occurrence: US)
  Receive Date: 20111130
  Receipt Date: 20141205
  Transmission Date: 20150529
  Serious: Yes (Hospitalization)
  Sender: FDA-Public Use
  Company Number: US200910001128

PATIENT
  Age: 59 Year
  Sex: Female
  Weight: 187 kg

DRUGS (20)
  1. METOPROLOL SUCCINATE. [Concomitant]
     Active Substance: METOPROLOL SUCCINATE
     Indication: BLOOD PRESSURE
     Route: 048
  2. CALTRATE VITAMINE D3 [Concomitant]
     Active Substance: CALCIUM CARBONATE\VITAMIN D
     Indication: MENOPAUSE
     Dosage: 1DF:1TAB.CITRACAL + D 315 MG-250 INTL UNITS ORAL TABLET
     Route: 048
     Dates: start: 200705
  3. JANUVIA [Concomitant]
     Active Substance: SITAGLIPTIN PHOSPHATE
     Indication: DIABETES MELLITUS
     Route: 048
     Dates: start: 200705
  4. TYLENOL [Concomitant]
     Active Substance: ACETAMINOPHEN
     Indication: PAIN
     Dates: start: 200705, end: 200712
  5. EXENATIDE UNK STRENGTH PEN, DISPOSABLE DEVICE [Concomitant]
     Active Substance: EXENATIDE
  6. PROZAC [Concomitant]
     Active Substance: FLUOXETINE HYDROCHLORIDE
     Indication: DEPRESSION
     Route: 048
     Dates: start: 200705
  7. HUMALOG [Concomitant]
     Active Substance: INSULIN LISPRO
     Dosage: 1DF:SOLUTION 100 UNIT/ML, 20 + UNITS PER SLIDING SCALE
     Route: 058
  8. HUMULIN N [Concomitant]
     Active Substance: INSULIN HUMAN
     Dosage: SUSPENSION 100 UNITIML, 34 UNITS QAM AND 3 0-34 UNITS QPM
     Route: 058
  9. LISINOPRIL. [Concomitant]
     Active Substance: LISINOPRIL
     Indication: HYPERTENSION
     Route: 048
  10. ISOPHANE INSULIN [Concomitant]
     Active Substance: INSULIN NOS
     Route: 058
  11. MUPIROCIN. [Concomitant]
     Active Substance: MUPIROCIN
     Dosage: OINTMENT
     Route: 061
  12. BYETTA [Suspect]
     Active Substance: EXENATIDE
     Route: 065
     Dates: start: 20060208, end: 20070618
  13. ASPIRIN. [Concomitant]
     Active Substance: ASPIRIN
     Dosage: TAB
     Route: 048
  14. ACETAMINOPHEN + HYDROCODONE [Concomitant]
     Active Substance: ACETAMINOPHEN\HYDROCODONE
     Indication: PAIN
     Dosage: 1DF:1TAB.ACETAMINOEPHEN-HYDROCODENE 325 MG-5 MG ORAL TABLET
     Route: 047
  15. ROSUVASTATIN [Concomitant]
     Active Substance: ROSUVASTATIN
     Dosage: TAB
     Route: 048
  16. CRESTOR [Concomitant]
     Active Substance: ROSUVASTATIN CALCIUM
     Indication: HYPERLIPIDAEMIA
     Route: 048
  17. DOCUSATE SODIUM + SENNA [Concomitant]
     Dosage: 2 DF:2TAB. DOCUSATE-SENNA 50 MG-8.6 MG ORAL TABLET
     Route: 048
  18. FLUOXETINE [Concomitant]
     Active Substance: FLUOXETINE\FLUOXETINE HYDROCHLORIDE
     Dosage: 1DF:1TAB. 20 MG ORAL TABLET
     Route: 048
  19. MULTIVITAMIN WITH MINERALS [Concomitant]
     Active Substance: MINERALS\VITAMINS
  20. NEXIUM [Concomitant]
     Active Substance: ESOMEPRAZOLE MAGNESIUM
     Route: 048

REACTIONS (1)
  - Pancreatitis acute [Recovering/Resolving]

NARRATIVE: CASE EVENT DATE: 20070618
